FAERS Safety Report 12749735 (Version 1)
Quarter: 2016Q3

REPORT INFORMATION
  Report Type: Spontaneous
  Country: US (occurrence: US)
  Receive Date: 20160916
  Receipt Date: 20160916
  Transmission Date: 20161109
  Serious: Yes (Other)
  Sender: FDA-Public Use
  Company Number: US-JNJCP-30000353701

PATIENT
  Age: 7 Year
  Sex: Female

DRUGS (1)
  1. JOHNSONS PRODUCTS [Suspect]
     Active Substance: UNSPECIFIED INGREDIENT
     Dosage: EVERY DIAPER CHANGE
     Route: 061

REACTIONS (1)
  - Ovarian cancer stage IV [Not Recovered/Not Resolved]
